FAERS Safety Report 22163258 (Version 1)
Quarter: 2023Q2

REPORT INFORMATION
  Report Type: Report from Study
  Country: US (occurrence: US)
  Receive Date: 20230401
  Receipt Date: 20230401
  Transmission Date: 20230721
  Serious: No
  Sender: FDA-Public Use
  Company Number: US-002147023-NVSC2023US073857

PATIENT
  Sex: Female
  Weight: 90.72 kg

DRUGS (3)
  1. KETOCONAZOLE [Suspect]
     Active Substance: KETOCONAZOLE
     Indication: Psoriasis
     Dosage: UNK
     Route: 065
  2. DESONIDE [Suspect]
     Active Substance: DESONIDE
     Indication: Psoriasis
     Route: 065
  3. CLOBETASOL [Suspect]
     Active Substance: CLOBETASOL
     Indication: Psoriasis
     Route: 065

REACTIONS (2)
  - Arthralgia [Unknown]
  - Treatment failure [Unknown]
